FAERS Safety Report 7020637-3 (Version None)
Quarter: 2010Q3

REPORT INFORMATION
  Report Type: 
  Country: None (occurrence: None)
  Receive Date: 20100927
  Receipt Date: 20100910
  Transmission Date: 20110219
  Serious: Yes (Hospitalization)
  Sender: FDA-Public Use
  Company Number: DSA_43982_2010

PATIENT
  Age: 66 Year
  Sex: Male

DRUGS (8)
  1. ENALAPRIL MALEATE [Suspect]
     Indication: PRODUCT USED FOR UNKNOWN INDICATION
     Dosage: (10 MG QD ORAL)
     Route: 048
  2. SORAFENIB (SORAFENIB) [Suspect]
     Indication: HEPATIC NEOPLASM MALIGNANT
     Dosage: (400 MG BID ORAL), (400 MG BID ORAL)
     Route: 048
     Dates: start: 20100319, end: 20100805
  3. SORAFENIB (SORAFENIB) [Suspect]
     Indication: HEPATIC NEOPLASM MALIGNANT
     Dosage: (400 MG BID ORAL), (400 MG BID ORAL)
     Route: 048
     Dates: start: 20100101
  4. ENALAPRIL COMP (ENALAPRIL COMP - ENALAPRIL MALEATE-HCTZ) (NOT SPECIFIE [Suspect]
     Indication: PRODUCT USED FOR UNKNOWN INDICATION
     Dosage: (10-25 MG/DAILY ORAL)
     Route: 048
  5. ASPIRIN [Concomitant]
  6. BISOPROLOL FUMARATE [Concomitant]
  7. ISOPHANE INSULIN [Concomitant]
  8. LEVOTHYROXINE SODIUM [Concomitant]

REACTIONS (1)
  - DRUG HYPERSENSITIVITY [None]
